FAERS Safety Report 9246017 (Version 2)
Quarter: 2013Q4

REPORT INFORMATION
  Report Type: Spontaneous
  Country: TR (occurrence: TR)
  Receive Date: 20130422
  Receipt Date: 20131231
  Transmission Date: 20140711
  Serious: Yes (Other)
  Sender: FDA-Public Use
  Company Number: TR-BAYER-2013-046924

PATIENT
  Age: 32 Year
  Sex: Female

DRUGS (1)
  1. QLAIRISTA [Suspect]
     Dosage: UNK
     Route: 048

REACTIONS (4)
  - Dyspnoea [Recovered/Resolved]
  - Palpitations [Recovered/Resolved]
  - Pain in extremity [Recovered/Resolved]
  - Dizziness [Recovered/Resolved]
